FAERS Safety Report 17855897 (Version 4)
Quarter: 2020Q3

REPORT INFORMATION
  Report Type: Report from Study
  Country: US (occurrence: US)
  Receive Date: 20200603
  Receipt Date: 20200817
  Transmission Date: 20201103
  Serious: Yes (Other)
  Sender: FDA-Public Use
  Company Number: NVSC2020US152294

PATIENT
  Sex: Male

DRUGS (1)
  1. ENTRESTO [Suspect]
     Active Substance: SACUBITRIL\VALSARTAN
     Indication: CARDIAC FAILURE
     Dosage: 200 MG, BID (97103)
     Route: 048
     Dates: start: 201911

REACTIONS (4)
  - Therapeutic response unexpected [Unknown]
  - Syncope [Unknown]
  - Vision blurred [Unknown]
  - Dizziness [Unknown]
